FAERS Safety Report 9456921 (Version 2)
Quarter: 2013Q3

REPORT INFORMATION
  Report Type: Spontaneous
  Country: CA (occurrence: CA)
  Receive Date: 20130813
  Receipt Date: 20130918
  Transmission Date: 20140515
  Serious: Yes (Other)
  Sender: FDA-Public Use
  Company Number: CA-JNJFOC-20130800333

PATIENT
  Sex: Male
  Weight: 108.86 kg

DRUGS (2)
  1. NICODERM CQ [Suspect]
     Indication: SMOKING CESSATION THERAPY
     Dosage: 21 MG PATCH, 2 PATCHES
     Route: 061
     Dates: start: 20130716
  2. NICORETTE INHALER [Suspect]
     Indication: SMOKING CESSATION THERAPY
     Dosage: 3 OR 4 INHALER CARTRIDGES A DAY
     Route: 055
     Dates: start: 20130716

REACTIONS (2)
  - Drug prescribing error [Unknown]
  - Overdose [Unknown]
